FAERS Safety Report 6831221-6 (Version None)
Quarter: 2010Q3

REPORT INFORMATION
  Report Type: 
  Country: None (occurrence: None)
  Receive Date: 20100712
  Receipt Date: 20100705
  Transmission Date: 20110219
  Serious: Yes (Hospitalization)
  Sender: FDA-Public Use
  Company Number: DE-JNJCH-2010015911

PATIENT
  Sex: Male

DRUGS (1)
  1. REACTINE DUO [Suspect]
     Indication: PRODUCT USED FOR UNKNOWN INDICATION
     Dosage: TEXT:TWO TABLETS ONCE
     Route: 048

REACTIONS (1)
  - ANAPHYLACTIC SHOCK [None]
